FAERS Safety Report 21361233 (Version 4)
Quarter: 2022Q4

REPORT INFORMATION
  Report Type: Spontaneous
  Country: CA (occurrence: CA)
  Receive Date: 20220921
  Receipt Date: 20221110
  Transmission Date: 20230113
  Serious: Yes (Other)
  Sender: FDA-Public Use
  Company Number: CA-BAUSCH-BL-2022-022226

PATIENT
  Age: 70 Year
  Sex: Female

DRUGS (11)
  1. NABILONE [Interacting]
     Active Substance: NABILONE
     Indication: Nausea
     Route: 048
  2. NABILONE [Interacting]
     Active Substance: NABILONE
     Indication: Vomiting
     Route: 048
  3. NABILONE [Interacting]
     Active Substance: NABILONE
     Indication: Neuralgia
     Route: 048
  4. PACLITAXEL [Interacting]
     Active Substance: PACLITAXEL
     Indication: Small cell lung cancer
     Route: 065
  5. CISPLATIN [Concomitant]
     Active Substance: CISPLATIN
     Indication: Small cell lung cancer
     Route: 065
  6. DOCETAXEL [Concomitant]
     Active Substance: DOCETAXEL
     Indication: Small cell lung cancer
     Route: 065
  7. BISOPROLOL [Concomitant]
     Active Substance: BISOPROLOL
     Indication: Product used for unknown indication
  8. BUPROPION [Concomitant]
     Active Substance: BUPROPION
     Indication: Product used for unknown indication
  9. DOMPERIDONE [Concomitant]
     Active Substance: DOMPERIDONE
     Indication: Product used for unknown indication
  10. HALDOL [Concomitant]
     Active Substance: HALOPERIDOL
     Indication: Product used for unknown indication
  11. LORAZEPAM [Concomitant]
     Active Substance: LORAZEPAM
     Indication: Product used for unknown indication

REACTIONS (3)
  - Cannabinoid hyperemesis syndrome [Recovered/Resolved]
  - Drug interaction [Recovered/Resolved]
  - Cognitive disorder [Unknown]
